FAERS Safety Report 5853692-4 (Version None)
Quarter: 2008Q3

REPORT INFORMATION
  Report Type: 
  Country: None (occurrence: None)
  Receive Date: 20080822
  Receipt Date: 20080814
  Transmission Date: 20090109
  Serious: Yes (Hospitalization)
  Sender: FDA-Public Use
  Company Number: PHHY2008CA16716

PATIENT
  Sex: Female

DRUGS (1)
  1. SANDOSTATIN LAR [Suspect]
     Indication: HEPATIC NEOPLASM MALIGNANT
     Dosage: 20 MG ONCE A MONTH
     Route: 030
     Dates: start: 20070212

REACTIONS (4)
  - HAEMOGLOBIN DECREASED [None]
  - HEPATIC NEOPLASM MALIGNANT [None]
  - HEPATIC PAIN [None]
  - TRANSFUSION [None]
